FAERS Safety Report 17342376 (Version 1)
Quarter: 2020Q1

REPORT INFORMATION
  Report Type: Spontaneous
  Country: US (occurrence: US)
  Receive Date: 20200129
  Receipt Date: 20200129
  Transmission Date: 20200409
  Serious: No
  Sender: FDA-Public Use
  Company Number: US-ALLERGAN-1905515US

PATIENT
  Sex: Female

DRUGS (1)
  1. BOTOX [Suspect]
     Active Substance: ONABOTULINUMTOXINA
     Indication: HYPERTONIC BLADDER
     Dosage: 100 UNITS, SINGLE
     Route: 030
     Dates: start: 201811, end: 201811

REACTIONS (7)
  - Parkinson^s disease [Unknown]
  - Fine motor skill dysfunction [Unknown]
  - Muscle twitching [Unknown]
  - Infection [Unknown]
  - Drug ineffective [Unknown]
  - Tremor [Unknown]
  - Urinary retention [Unknown]
